FAERS Safety Report 17150913 (Version 1)
Quarter: 2019Q4

REPORT INFORMATION
  Report Type: Spontaneous
  Country: US (occurrence: US)
  Receive Date: 20191212
  Receipt Date: 20191212
  Transmission Date: 20200122
  Serious: Yes (Hospitalization)
  Sender: FDA-Public Use
  Company Number: None

PATIENT
  Age: 86 Year
  Sex: Female
  Weight: 59.2 kg

DRUGS (15)
  1. CLOPIDOGREL [Suspect]
     Active Substance: CLOPIDOGREL BISULFATE
     Dates: start: 20121204
  2. ENTACAPONE 200MG TID [Concomitant]
  3. GABAPENTIN 300MG BID [Concomitant]
  4. ROPINIROLE 0.25MG TID [Concomitant]
  5. SOTALOL 80MG BID [Concomitant]
  6. DIGOXIN 250 MCG DAILY [Concomitant]
  7. ASPIRIN. [Suspect]
     Active Substance: ASPIRIN
     Indication: TRANSIENT ISCHAEMIC ATTACK
     Route: 048
     Dates: start: 20121204
  8. MONTELUKAST 10MG NIGHTLY [Concomitant]
  9. OMEPRAZOLE 40MG DAILY [Concomitant]
  10. PREGABALIN 75MG BID [Concomitant]
  11. TRIAMTERENE/HCTZ 37.5/25MG DAILY [Concomitant]
  12. CARVEDILOL 6.25MG BID [Concomitant]
  13. RIVAROXABAN [Suspect]
     Active Substance: RIVAROXABAN
     Indication: ATRIAL FIBRILLATION
     Route: 048
     Dates: start: 20140626
  14. CARBIDOPA/LEVODOPA 50/200MG BID [Concomitant]
  15. SIMVASTATIN 40MG DAILY [Concomitant]

REACTIONS (2)
  - Brain contusion [None]
  - Cerebral haemorrhage [None]

NARRATIVE: CASE EVENT DATE: 20151208
